FAERS Safety Report 12733130 (Version 2)
Quarter: 2017Q1

REPORT INFORMATION
  Report Type: Spontaneous
  Country: US (occurrence: US)
  Receive Date: 20160912
  Receipt Date: 20170303
  Transmission Date: 20170428
  Serious: Yes (Hospitalization, Other)
  Sender: FDA-Public Use
  Company Number: US-JNJFOC-20160822149

PATIENT
  Age: 63 Year
  Sex: Female

DRUGS (6)
  1. XARELTO [Suspect]
     Active Substance: RIVAROXABAN
     Indication: THROMBOSIS PROPHYLAXIS
     Route: 048
     Dates: start: 2015, end: 20150902
  2. XARELTO [Suspect]
     Active Substance: RIVAROXABAN
     Indication: THROMBOSIS PROPHYLAXIS
     Dosage: EARLIER, THE PATIENT^S DOSAGE WAS 15MG TWICE DAILY FOR 21 DAYS AND THEN 20 MG ONCE DAILY.
     Route: 048
     Dates: start: 20141001, end: 20150829
  3. XARELTO [Suspect]
     Active Substance: RIVAROXABAN
     Indication: CEREBROVASCULAR ACCIDENT PROPHYLAXIS
     Route: 048
     Dates: start: 2015, end: 20150902
  4. XARELTO [Suspect]
     Active Substance: RIVAROXABAN
     Indication: ATRIAL FIBRILLATION
     Dosage: EARLIER, THE PATIENT^S DOSAGE WAS 15MG TWICE DAILY FOR 21 DAYS AND THEN 20 MG ONCE DAILY.
     Route: 048
     Dates: start: 20141001, end: 20150829
  5. XARELTO [Suspect]
     Active Substance: RIVAROXABAN
     Indication: ATRIAL FIBRILLATION
     Route: 048
     Dates: start: 2015, end: 20150902
  6. XARELTO [Suspect]
     Active Substance: RIVAROXABAN
     Indication: CEREBROVASCULAR ACCIDENT PROPHYLAXIS
     Dosage: EARLIER, THE PATIENT^S DOSAGE WAS 15MG TWICE DAILY FOR 21 DAYS AND THEN 20 MG ONCE DAILY.
     Route: 048
     Dates: start: 20141001, end: 20150829

REACTIONS (3)
  - Haematuria [Unknown]
  - Haemorrhage [Unknown]
  - Vaginal haemorrhage [Recovering/Resolving]

NARRATIVE: CASE EVENT DATE: 20150612
